FAERS Safety Report 11655917 (Version 1)
Quarter: 2015Q4

REPORT INFORMATION
  Report Type: Spontaneous
  Country: US (occurrence: ES)
  Receive Date: 20151023
  Receipt Date: 20151023
  Transmission Date: 20160304
  Serious: Yes (Other)
  Sender: FDA-Public Use
  Company Number: ES-IPCA LABORATORIES LIMITED-IPC201510-000695

PATIENT
  Age: 56 Year
  Sex: Female

DRUGS (7)
  1. GABAPENTIN. [Suspect]
     Active Substance: GABAPENTIN
  2. GABAPENTIN. [Suspect]
     Active Substance: GABAPENTIN
  3. DULOXETINE. [Concomitant]
     Active Substance: DULOXETINE
     Indication: DEPRESSION
  4. AMYTRIPTYLINE [Concomitant]
  5. TRAMADOL. [Suspect]
     Active Substance: TRAMADOL
  6. GABAPENTIN. [Suspect]
     Active Substance: GABAPENTIN
  7. DULOXETINE. [Concomitant]
     Active Substance: DULOXETINE
     Indication: ANXIETY

REACTIONS (3)
  - Rash generalised [Recovered/Resolved]
  - Psychotic disorder due to a general medical condition [Unknown]
  - Pruritus [Recovered/Resolved]
